FAERS Safety Report 4989980-3 (Version None)
Quarter: 2006Q2

REPORT INFORMATION
  Report Type: 
  Country: None (occurrence: None)
  Receive Date: 20060428
  Receipt Date: 20060421
  Transmission Date: 20061013
  Serious: Yes (Other)
  Sender: FDA-Public Use
  Company Number: 200610422GDS

PATIENT
  Age: 79 Year
  Sex: Female

DRUGS (8)
  1. AVELOX [Suspect]
     Indication: CHRONIC OBSTRUCTIVE PULMONARY DISEASE
     Dates: start: 20000219, end: 20000227
  2. CLONAZEPAM [Concomitant]
  3. ASPIRIN [Concomitant]
  4. GLYBURIDE [Concomitant]
  5. METOPROLOL TARTRATE [Concomitant]
  6. PREDNISONE TAB [Concomitant]
  7. TERAZOSIN HCL [Concomitant]
  8. VASOTEC [Concomitant]

REACTIONS (1)
  - HYPOGLYCAEMIA [None]
